FAERS Safety Report 4888465-2 (Version None)
Quarter: 2005Q4

REPORT INFORMATION
  Report Type: 
  Country: None (occurrence: None)
  Receive Date: 20051207
  Receipt Date: 20050714
  Transmission Date: 20060501
  Serious: Yes (Other)
  Sender: FDA-Public Use
  Company Number: 2005102391

PATIENT
  Age: 63 Year
  Sex: Male
  Weight: 90.7194 kg

DRUGS (3)
  1. VIAGRA [Suspect]
     Indication: ILL-DEFINED DISORDER
     Dosage: (50 MG, PRN), ORAL
     Route: 048
  2. VITAMIN C (VITAMIN C) [Concomitant]
  3. VITAMIN E [Concomitant]

REACTIONS (1)
  - OPTIC ISCHAEMIC NEUROPATHY [None]
